FAERS Safety Report 21936896 (Version 1)
Quarter: 2023Q1

REPORT INFORMATION
  Report Type: Spontaneous
  Country: FR (occurrence: FR)
  Receive Date: 20230201
  Receipt Date: 20230201
  Transmission Date: 20230417
  Serious: Yes (Other)
  Sender: FDA-Public Use
  Company Number: None

PATIENT
  Age: 28 Year
  Sex: Male
  Weight: 68 kg

DRUGS (2)
  1. FINASTERIDE [Suspect]
     Active Substance: FINASTERIDE
     Indication: Androgenetic alopecia
     Route: 065
     Dates: start: 20200702, end: 20221120
  2. EMTRICITABINE/TENOFOVIR DISOPROXIL BIOGARAN [Concomitant]
     Indication: Product used for unknown indication
     Dosage: EMTRICITABINE/TENOFOVIR DISOPROXIL BIOGARAN 200 MG/245 MG,
     Route: 065

REACTIONS (3)
  - Male orgasmic disorder [Recovering/Resolving]
  - Loss of libido [Recovering/Resolving]
  - Erectile dysfunction [Recovering/Resolving]

NARRATIVE: CASE EVENT DATE: 20221119
